FAERS Safety Report 25077355 (Version 1)
Quarter: 2025Q1

REPORT INFORMATION
  Report Type: Spontaneous
  Country: GB (occurrence: GB)
  Receive Date: 20250314
  Receipt Date: 20250314
  Transmission Date: 20250409
  Serious: Yes (Death, Hospitalization)
  Sender: BOEHRINGER INGELHEIM
  Company Number: GB-BoehringerIngelheim-2025-BI-007809

PATIENT
  Age: 55 Year
  Sex: Female

DRUGS (1)
  1. NINTEDANIB [Suspect]
     Active Substance: NINTEDANIB
     Indication: Product used for unknown indication
     Dosage: DOSE DETAILS: NASOGASTRIC (NG), FOR APPROXIMATELY 2 MONTHS, RECEIVING NTD WHEN SHE DIED.

REACTIONS (10)
  - Disease progression [Fatal]
  - Lung consolidation [Unknown]
  - Interstitial lung disease [Unknown]
  - Pneumonitis [Unknown]
  - Respiratory failure [Unknown]
  - Lower respiratory tract infection [Unknown]
  - Influenza [Unknown]
  - Pulmonary embolism [Unknown]
  - Product use issue [Unknown]
  - Cytomegalovirus infection [Unknown]

NARRATIVE: CASE EVENT DATE: 20250101
